FAERS Safety Report 4442911-7 (Version None)
Quarter: 2004Q3

REPORT INFORMATION
  Report Type: 
  Country: None (occurrence: None)
  Receive Date: 20040728
  Receipt Date: 20040513
  Transmission Date: 20050211
  Serious: No
  Sender: FDA-Public Use
  Company Number: US_0405103012

PATIENT
  Age: 4 Year
  Sex: Male

DRUGS (2)
  1. STRATTERA [Suspect]
     Indication: AUTISM
  2. CLONIDINE HCL [Concomitant]

REACTIONS (3)
  - AGGRESSION [None]
  - NIGHTMARE [None]
  - TACHYCARDIA [None]
